FAERS Safety Report 7468228-4 (Version None)
Quarter: 2011Q2

REPORT INFORMATION
  Report Type: 
  Country: None (occurrence: None)
  Receive Date: 20110509
  Receipt Date: 20110411
  Transmission Date: 20111010
  Serious: Yes (Life-Threatening, Hospitalization)
  Sender: FDA-Public Use
  Company Number: US-BAYER-2011-014044

PATIENT
  Age: 21 Year
  Sex: Female
  Weight: 108.84 kg

DRUGS (7)
  1. METFORMIN [Concomitant]
  2. YASMIN [Suspect]
     Indication: CONTRACEPTION
     Dosage: UNK
     Dates: start: 20050301
  3. GABAPENTIN [Concomitant]
     Dosage: UNK
     Dates: start: 20060101
  4. ACETAMINOPHEN [Concomitant]
     Indication: PAIN IN EXTREMITY
  5. GEODON [Concomitant]
  6. AVANDIA [Concomitant]
  7. ASPIRIN [Concomitant]
     Indication: HYPOCOAGULABLE STATE

REACTIONS (5)
  - DEEP VEIN THROMBOSIS [None]
  - FEAR [None]
  - ANXIETY [None]
  - PULMONARY EMBOLISM [None]
  - PAIN [None]
